FAERS Safety Report 23150174 (Version 1)
Quarter: 2023Q4

REPORT INFORMATION
  Report Type: Report from Study
  Country: KR (occurrence: KR)
  Receive Date: 20231106
  Receipt Date: 20231106
  Transmission Date: 20240110
  Serious: Yes (Death)
  Sender: FDA-Public Use
  Company Number: KR-PFIZER INC-PV202300178629

PATIENT
  Age: 62 Year
  Sex: Female

DRUGS (4)
  1. CYTARABINE [Suspect]
     Active Substance: CYTARABINE
     Indication: Acute myeloid leukaemia
     Dosage: 5+2 INDUCTION CHEMOTHERAPY
     Dates: start: 201902, end: 2019
  2. CYTARABINE [Suspect]
     Active Substance: CYTARABINE
     Dosage: INTERMEDIATE DOSE
     Dates: start: 201904, end: 2019
  3. IDARUBICIN HYDROCHLORIDE [Suspect]
     Active Substance: IDARUBICIN HYDROCHLORIDE
     Indication: Acute myeloid leukaemia
     Dosage: 5+2 INDUCTION CHEMOTHERAPY
     Dates: start: 201902, end: 2019
  4. RUXOLITINIB [Suspect]
     Active Substance: RUXOLITINIB
     Indication: Premedication
     Dosage: 15 MG, 2X/DAY
     Dates: start: 201902, end: 2019

REACTIONS (1)
  - Pneumonia [Fatal]

NARRATIVE: CASE EVENT DATE: 20190101
